FAERS Safety Report 9293371 (Version 1)
Quarter: 2013Q2

REPORT INFORMATION
  Report Type: Spontaneous
  Country: HU (occurrence: HU)
  Receive Date: 20130516
  Receipt Date: 20130516
  Transmission Date: 20140414
  Serious: Yes (Other)
  Sender: FDA-Public Use
  Company Number: HU-TEVA-403902ISR

PATIENT
  Sex: Male

DRUGS (6)
  1. LEFLUNOMIDE [Suspect]
     Indication: GRANULOMATOSIS WITH POLYANGIITIS
     Dosage: LEFLUNOMID WAS GIVEN FOR UNK PERIOD SOMETIME BETWEEN 2008 AND 2012.
  2. STEROIDS [Concomitant]
     Indication: GRANULOMATOSIS WITH POLYANGIITIS
  3. CYCLOPHOSPHAMIDE [Concomitant]
     Indication: GRANULOMATOSIS WITH POLYANGIITIS
  4. AZATHIOPRIN [Concomitant]
     Indication: GRANULOMATOSIS WITH POLYANGIITIS
     Dates: start: 200710
  5. METHOTREXATE [Concomitant]
     Indication: GRANULOMATOSIS WITH POLYANGIITIS
  6. RITUXIMAB [Concomitant]
     Indication: GRANULOMATOSIS WITH POLYANGIITIS
     Dates: start: 201204

REACTIONS (2)
  - Haematochezia [Unknown]
  - Granulomatosis with polyangiitis [Unknown]
